FAERS Safety Report 4769007-9 (Version None)
Quarter: 2005Q3

REPORT INFORMATION
  Report Type: 
  Country: None (occurrence: None)
  Receive Date: 20050913
  Receipt Date: 20050901
  Transmission Date: 20060218
  Serious: Yes (Hospitalization)
  Sender: FDA-Public Use
  Company Number: 2005122752

PATIENT
  Age: 23 Year
  Sex: Female

DRUGS (1)
  1. LIPITOR [Suspect]
     Indication: HYPERCHOLESTEROLAEMIA
     Dosage: 40 MG (40 MG, 1 IN 1 D),ORAL
     Route: 048
     Dates: start: 20050801, end: 20050801

REACTIONS (2)
  - DEHYDRATION [None]
  - DIARRHOEA [None]
